FAERS Safety Report 24072472 (Version 1)
Quarter: 2024Q3

REPORT INFORMATION
  Report Type: Spontaneous
  Country: FR (occurrence: FR)
  Receive Date: 20240710
  Receipt Date: 20240710
  Transmission Date: 20241017
  Serious: Yes (Hospitalization)
  Sender: TEVA
  Company Number: None

PATIENT
  Age: 65 Year
  Sex: Female
  Weight: 56 kg

DRUGS (5)
  1. TRISENOX [Suspect]
     Active Substance: ARSENIC TRIOXIDE
     Indication: Acute myeloid leukaemia
     Dosage: TIME INTERVAL: CYCLICAL: 18 MG FROM D1 TO D5 OF EACH CYCLE (= 31 DAYS)
     Route: 042
     Dates: start: 20240118, end: 20240318
  2. TRISENOX [Suspect]
     Active Substance: ARSENIC TRIOXIDE
     Indication: Acute myeloid leukaemia
     Dosage: TIME INTERVAL: CYCLICAL: 15 MG FROM D8 TO D31 OF EACH CYCLE (= 31 DAYS)
     Route: 042
     Dates: start: 20240118, end: 20240318
  3. ICLUSIG [Suspect]
     Active Substance: PONATINIB\PONATINIB HYDROCHLORIDE
     Indication: Acute myeloid leukaemia
     Dosage: 30 MG/DAY
     Route: 048
     Dates: start: 20240204, end: 20240315
  4. ICLUSIG [Suspect]
     Active Substance: PONATINIB\PONATINIB HYDROCHLORIDE
     Indication: Acute myeloid leukaemia
     Dosage: 15 MG/DAY
     Route: 048
     Dates: start: 20240131, end: 20240203
  5. VESANOID [Suspect]
     Active Substance: TRETINOIN
     Indication: Acute myeloid leukaemia
     Dosage: 80 MG/DAY (I.E. 45 MG/M2)
     Route: 048
     Dates: start: 20240115, end: 20240318

REACTIONS (1)
  - Pericardial effusion [Recovered/Resolved]

NARRATIVE: CASE EVENT DATE: 20240304
